FAERS Safety Report 14151037 (Version 1)
Quarter: 2017Q4

REPORT INFORMATION
  Report Type: Report from Study
  Country: US (occurrence: US)
  Receive Date: 20171102
  Receipt Date: 20171102
  Transmission Date: 20180321
  Serious: Yes (Hospitalization)
  Sender: FDA-Public Use
  Company Number: US-ROCHE-GNE094744

PATIENT
  Sex: Female

DRUGS (4)
  1. ALTEPLASE. [Suspect]
     Active Substance: ALTEPLASE
     Route: 042
  2. WARFARIN [Concomitant]
     Active Substance: WARFARIN
  3. ALTEPLASE. [Suspect]
     Active Substance: ALTEPLASE
     Indication: DEEP VEIN THROMBOSIS
     Route: 042
  4. HEPARIN [Concomitant]
     Active Substance: HEPARIN SODIUM

REACTIONS (1)
  - Epistaxis [Unknown]
